FAERS Safety Report 14823219 (Version 3)
Quarter: 2019Q3

REPORT INFORMATION
  Report Type: Report from Study
  Country: TW (occurrence: TW)
  Receive Date: 20180427
  Receipt Date: 20190806
  Transmission Date: 20191004
  Serious: Yes (Hospitalization, Other)
  Sender: FDA-Public Use
  Company Number: PHHY2016TW035578

PATIENT
  Age: 55 Year
  Sex: Female
  Weight: 47 kg

DRUGS (20)
  1. TASIGNA [Suspect]
     Active Substance: NILOTINIB
     Dosage: 450 OT, UNK
     Route: 048
     Dates: start: 20150922, end: 20151005
  2. TASIGNA [Suspect]
     Active Substance: NILOTINIB
     Dosage: 450 OT, UNK
     Route: 048
     Dates: start: 20151210, end: 20160301
  3. TASIGNA [Suspect]
     Active Substance: NILOTINIB
     Dosage: 300 OT, UNK
     Route: 048
     Dates: start: 20160331, end: 20170620
  4. TASIGNA [Suspect]
     Active Substance: NILOTINIB
     Dosage: 300 OT, UNK
     Route: 048
     Dates: start: 20170829
  5. IOHEXOL [Concomitant]
     Active Substance: IOHEXOL
     Indication: PRODUCT USED FOR UNKNOWN INDICATION
     Dosage: 350 MG, UNK
     Route: 065
     Dates: start: 20170310, end: 20170310
  6. SIMETHICONE (DIMETHICONE) [Concomitant]
     Active Substance: DIMETHICONE
     Indication: GASTRIC ULCER
     Dosage: 80 MG, UNK
     Route: 048
     Dates: start: 20150505, end: 20150511
  7. PINAVERIUM [Concomitant]
     Active Substance: PINAVERIUM BROMIDE
     Indication: GASTROOESOPHAGEAL REFLUX DISEASE
     Dosage: 50 MG, UNK
     Route: 048
     Dates: start: 20160107, end: 20160113
  8. ALPRAZOLAM. [Concomitant]
     Active Substance: ALPRAZOLAM
     Indication: PROPHYLAXIS
     Dosage: 0.5 MG, UNK
     Route: 048
     Dates: start: 20150811, end: 20150824
  9. TASIGNA [Suspect]
     Active Substance: NILOTINIB
     Dosage: 300 OT, UNK
     Route: 048
     Dates: start: 20150908, end: 20150921
  10. TASIGNA [Suspect]
     Active Substance: NILOTINIB
     Dosage: 400 OT, UNK
     Route: 048
     Dates: start: 20170621, end: 20170814
  11. ESOMEPRAZOLE. [Concomitant]
     Active Substance: ESOMEPRAZOLE MAGNESIUM
     Indication: GASTRITIS
     Dosage: 40 MG, UNK
     Route: 048
     Dates: start: 20160817, end: 20160818
  12. TOPAAL [Concomitant]
     Active Substance: ALGINIC ACID\ALUMINUM HYDROXIDE\MAGNESIUM CARBONATE
     Indication: GASTROOESOPHAGEAL REFLUX DISEASE
     Dosage: 540 MG, UNK
     Route: 048
     Dates: start: 20150825, end: 20150829
  13. DOMPERIDONE [Concomitant]
     Active Substance: DOMPERIDONE
     Indication: GASTRITIS
     Dosage: 10 MG, UNK
     Route: 048
     Dates: start: 20180102
  14. TASIGNA [Suspect]
     Active Substance: NILOTINIB
     Indication: CHRONIC MYELOID LEUKAEMIA
     Dosage: 600 OT, UNK
     Route: 048
     Dates: start: 20150428, end: 20150810
  15. RABEPRAZOLE [Concomitant]
     Active Substance: RABEPRAZOLE
     Indication: GASTRITIS
     Dosage: 20 MG, UNK
     Route: 048
     Dates: start: 20161101, end: 20161108
  16. TASIGNA [Suspect]
     Active Substance: NILOTINIB
     Dosage: 300 OT, UNK
     Route: 048
     Dates: start: 20151006, end: 20151209
  17. LOPERAMIDE [Concomitant]
     Active Substance: LOPERAMIDE
     Indication: PROPHYLAXIS
     Dosage: 2 MG, UNK
     Route: 048
     Dates: start: 20160308, end: 20160308
  18. FAMOTIDINE. [Concomitant]
     Active Substance: FAMOTIDINE
     Indication: GASTROOESOPHAGEAL REFLUX DISEASE
     Dosage: 20 MG, UNK
     Route: 048
     Dates: start: 20151224, end: 20160106
  19. TASIGNA [Suspect]
     Active Substance: NILOTINIB
     Dosage: 200 OT, UNK
     Route: 048
     Dates: start: 20170815, end: 20170828
  20. MOSAPRIDE [Concomitant]
     Active Substance: MOSAPRIDE
     Indication: GASTRIC ULCER
     Dosage: 5 MG, UNK
     Route: 048
     Dates: start: 20161101, end: 20161122

REACTIONS (19)
  - Pyelocaliectasis [Recovered/Resolved]
  - Flank pain [Recovered/Resolved]
  - Urinary tract infection [Recovered/Resolved]
  - Tubulointerstitial nephritis [Recovered/Resolved with Sequelae]
  - Blood glucose increased [Unknown]
  - Abdominal pain lower [Not Recovered/Not Resolved]
  - Pollakiuria [Recovered/Resolved]
  - Pyelonephritis acute [Recovered/Resolved]
  - Feeling cold [Recovered/Resolved]
  - Haemoglobin abnormal [Unknown]
  - Hydronephrosis [Recovered/Resolved]
  - Dysuria [Recovered/Resolved]
  - Red blood cell count decreased [Unknown]
  - Pyrexia [Recovered/Resolved]
  - Platelet count decreased [Unknown]
  - Urinary tract infection [Not Recovered/Not Resolved]
  - Pyrexia [Recovered/Resolved]
  - Pollakiuria [Not Recovered/Not Resolved]
  - Genital herpes simplex [Not Recovered/Not Resolved]

NARRATIVE: CASE EVENT DATE: 20151229
